FAERS Safety Report 9792977 (Version 2)
Quarter: 2014Q1

REPORT INFORMATION
  Report Type: Report from Study
  Country: US (occurrence: US)
  Receive Date: 20140102
  Receipt Date: 20140123
  Transmission Date: 20141002
  Serious: Yes (Hospitalization)
  Sender: FDA-Public Use
  Company Number: US-PURDUE-USA-2013-0109872

PATIENT
  Age: 65 Year
  Sex: Female
  Weight: 62.13 kg

DRUGS (2)
  1. OXY CR TAB [Suspect]
     Indication: PRODUCT USED FOR UNKNOWN INDICATION
     Dosage: UNK UNK, BID
     Route: 048
     Dates: start: 2005
  2. OXY CR TAB [Suspect]
     Dosage: 80 MG, Q12H
     Route: 048
     Dates: start: 20131217

REACTIONS (4)
  - Cardiac arrest [Recovered/Resolved]
  - Blood potassium decreased [Unknown]
  - Influenza [Unknown]
  - Malaise [Unknown]
